FAERS Safety Report 7919783-9 (Version None)
Quarter: 2011Q4

REPORT INFORMATION
  Report Type: 
  Country: None (occurrence: None)
  Receive Date: 20111117
  Receipt Date: 20111117
  Transmission Date: 20120403
  Serious: Yes (Death)
  Sender: FDA-Public Use
  Company Number: None

PATIENT
  Age: 73 Year
  Sex: Male
  Weight: 92.986 kg

DRUGS (4)
  1. VOLTAREN [Concomitant]
     Route: 048
  2. PREDNISONE TAB [Concomitant]
     Indication: OEDEMA PERIPHERAL
     Dosage: 3 PILLS
     Route: 048
     Dates: start: 20100218, end: 20100228
  3. DICLOFENAC SODIUM [Suspect]
     Indication: SCIATICA
     Dosage: 1 PILL
     Route: 048
     Dates: start: 20091001, end: 20100228
  4. ASPIRIN [Concomitant]
     Route: 048

REACTIONS (2)
  - OEDEMA PERIPHERAL [None]
  - GASTRIC HAEMORRHAGE [None]
